FAERS Safety Report 8033247-6 (Version None)
Quarter: 2012Q1

REPORT INFORMATION
  Report Type: 
  Country: None (occurrence: None)
  Receive Date: 20120110
  Receipt Date: 20120103
  Transmission Date: 20120608
  Serious: Yes (Death, Hospitalization, Other)
  Sender: FDA-Public Use
  Company Number: BE-MPIJNJ-2010-02783

PATIENT

DRUGS (17)
  1. METHYLPREDNISOLONE [Suspect]
     Indication: MULTIPLE MYELOMA
     Dosage: 64 MG, CYCLIC
     Route: 048
     Dates: start: 20100427, end: 20100430
  2. ASAFLOW [Concomitant]
     Indication: PROPHYLAXIS
     Dosage: 80 MG, UNK
  3. LAXOBERON [Concomitant]
     Indication: PRODUCT USED FOR UNKNOWN INDICATION
  4. BEFACT                             /00527001/ [Concomitant]
     Indication: PRODUCT USED FOR UNKNOWN INDICATION
  5. GASTROGRAFIN [Concomitant]
     Indication: CONSTIPATION
     Dosage: UNK
     Dates: start: 20100130
  6. CALCIUM CARBONATE [Concomitant]
     Indication: PRODUCT USED FOR UNKNOWN INDICATION
  7. LASIX [Concomitant]
     Indication: PRODUCT USED FOR UNKNOWN INDICATION
  8. LYSOMUCIL [Concomitant]
     Indication: PRODUCT USED FOR UNKNOWN INDICATION
  9. PREDNISONE TAB [Suspect]
     Indication: MULTIPLE MYELOMA
     Dosage: 160 MG, UNK
     Route: 065
  10. CORDARONE [Concomitant]
     Indication: PRODUCT USED FOR UNKNOWN INDICATION
  11. LANITOP [Concomitant]
     Indication: PRODUCT USED FOR UNKNOWN INDICATION
  12. TEMESTA                            /00273201/ [Concomitant]
     Indication: PRODUCT USED FOR UNKNOWN INDICATION
  13. VELCADE [Suspect]
     Indication: MULTIPLE MYELOMA
     Dosage: 1.8 MG/M2, CYCLIC
     Route: 042
     Dates: start: 20100427, end: 20100610
  14. LENALIDOMIDE [Suspect]
     Indication: MULTIPLE MYELOMA
     Dosage: 5 MG, UNK
     Route: 048
     Dates: start: 20100427, end: 20100610
  15. ASPIRIN [Concomitant]
     Indication: PROPHYLAXIS
  16. OMEPRAZOLE [Concomitant]
     Indication: PRODUCT USED FOR UNKNOWN INDICATION
  17. BLOOD CELLS, PACKED HUMAN [Concomitant]
     Indication: PRODUCT USED FOR UNKNOWN INDICATION

REACTIONS (8)
  - PULMONARY OEDEMA [None]
  - POLYNEUROPATHY [None]
  - CONSTIPATION [None]
  - DIAPHRAGMATIC PARALYSIS [None]
  - FAECALOMA [None]
  - ESCHERICHIA SEPSIS [None]
  - URINARY TRACT INFECTION [None]
  - PNEUMONIA [None]
